FAERS Safety Report 24962901 (Version 4)
Quarter: 2025Q2

REPORT INFORMATION
  Report Type: Spontaneous
  Country: US (occurrence: US)
  Receive Date: 20250213
  Receipt Date: 20250515
  Transmission Date: 20250717
  Serious: No
  Sender: SANOFI AVENTIS
  Company Number: US-SA-2025SA041293

PATIENT
  Age: 31 Year
  Sex: Female

DRUGS (5)
  1. DUPIXENT [Suspect]
     Active Substance: DUPILUMAB
     Indication: Dermatitis atopic
     Route: 058
     Dates: start: 2024, end: 2024
  2. DUPIXENT [Suspect]
     Active Substance: DUPILUMAB
     Indication: Eczema
     Dosage: 300 MG, QOW
     Route: 058
     Dates: start: 2024, end: 202412
  3. DUPIXENT [Suspect]
     Active Substance: DUPILUMAB
     Dosage: 300 MG, QOW
     Route: 058
     Dates: start: 202502
  4. HYDROCORTISONE [Concomitant]
     Active Substance: HYDROCORTISONE
  5. CLOBETASOL [Concomitant]
     Active Substance: CLOBETASOL

REACTIONS (12)
  - Rebound eczema [Not Recovered/Not Resolved]
  - Rash macular [Not Recovered/Not Resolved]
  - Skin fissures [Unknown]
  - Condition aggravated [Unknown]
  - Inflammation [Unknown]
  - Condition aggravated [Unknown]
  - Eyelids pruritus [Unknown]
  - Pruritus [Unknown]
  - Rash [Unknown]
  - Injection site pain [Unknown]
  - Drug ineffective [Unknown]
  - Device defective [Unknown]

NARRATIVE: CASE EVENT DATE: 20240101
